FAERS Safety Report 9814298 (Version 1)
Quarter: 2014Q1

REPORT INFORMATION
  Report Type: Spontaneous
  Country: GB (occurrence: GB)
  Receive Date: 20140113
  Receipt Date: 20140113
  Transmission Date: 20141002
  Serious: Yes (Hospitalization, Disabling, Other)
  Sender: FDA-Public Use
  Company Number: GB-009507513-1401GBR003979

PATIENT
  Age: 54 Year
  Sex: Female

DRUGS (3)
  1. ALENDRONATE SODIUM [Suspect]
     Indication: OSTEOPOROSIS
     Dosage: UNK
     Route: 048
     Dates: end: 20131227
  2. CLOMIPRAMINE HYDROCHLORIDE [Concomitant]
  3. FELBINAC [Concomitant]

REACTIONS (3)
  - Femur fracture [Unknown]
  - Bursitis [Not Recovered/Not Resolved]
  - Pain in extremity [Unknown]
